FAERS Safety Report 20504199 (Version 1)
Quarter: 2022Q1

REPORT INFORMATION
  Report Type: Spontaneous
  Country: US (occurrence: US)
  Receive Date: 20220222
  Receipt Date: 20220222
  Transmission Date: 20220423
  Serious: Yes (Other)
  Sender: FDA-Public Use
  Company Number: US-MALLINCKRODT-T202200645

PATIENT
  Sex: Female

DRUGS (2)
  1. H.P. ACTHAR [Interacting]
     Active Substance: CORTICOTROPIN
     Indication: Pulmonary fibrosis
     Dosage: 80 UNITS, EVERY 72 HOURS
     Route: 058
  2. OFEV [Interacting]
     Active Substance: NINTEDANIB
     Indication: Product used for unknown indication
     Dosage: UNKNOWN
     Route: 065

REACTIONS (2)
  - Haemorrhage [Unknown]
  - Drug interaction [Unknown]
